FAERS Safety Report 9838781 (Version 1)
Quarter: 2014Q1

REPORT INFORMATION
  Report Type: Spontaneous
  Country: GB (occurrence: None)
  Receive Date: 20140116
  Receipt Date: 20140116
  Transmission Date: 20141002
  Serious: Yes (Hospitalization)
  Sender: FDA-Public Use
  Company Number: 2117639

PATIENT
  Age: 65 Year
  Sex: Female
  Weight: 65 kg

DRUGS (15)
  1. (CYCLOPHOSPHAMIDE) [Suspect]
     Indication: B-CELL LYMPHOMA
     Route: 042
     Dates: start: 20131126, end: 20131126
  2. (PREDNISOLONE) [Concomitant]
  3. (ALLOPURINOL) [Concomitant]
  4. (AMITRIPTYLINE) [Concomitant]
  5. (BENDROFLUMETHIAZIDE) [Concomitant]
  6. (FOSINOPRIL) [Concomitant]
  7. (METFORMIN) [Concomitant]
  8. (METHYLCELLULOSE) [Concomitant]
  9. (PIOGLITAZONE) [Concomitant]
  10. (SAXAGLIPTIN) [Concomitant]
  11. (SIMVASTATIN) [Concomitant]
  12. (TERBUTALINE) [Concomitant]
  13. (VINCRISTINE SULFATE) [Suspect]
     Indication: B-CELL LYMPHOMA
     Route: 042
     Dates: start: 20131126, end: 20131126
  14. RITUXIMAB [Suspect]
     Indication: B-CELL LYMPHOMA
     Route: 042
     Dates: start: 20131126, end: 20131126
  15. DOXORUBICIN [Suspect]
     Indication: B-CELL LYMPHOMA
     Route: 042
     Dates: start: 20131126, end: 20131126

REACTIONS (3)
  - Pulmonary fibrosis [None]
  - Dyspnoea [None]
  - Sepsis [None]
